FAERS Safety Report 10084685 (Version 1)
Quarter: 2014Q2

REPORT INFORMATION
  Report Type: Spontaneous
  Country: US (occurrence: None)
  Receive Date: 20140414
  Receipt Date: 20140414
  Transmission Date: 20141212
  Serious: Yes (Other)
  Sender: FDA-Public Use
  Company Number: 20140166

PATIENT
  Age: 48 Year
  Sex: Female

DRUGS (5)
  1. BUPRENORPHINE HYDROCHLORIDE [Suspect]
     Indication: DRUG WITHDRAWAL SYNDROME
  2. TRAZODONE [Concomitant]
  3. HYDROCOEONE/ ACETAMINOPHEN [Concomitant]
  4. DULOXETINE [Concomitant]
  5. CLONAZEPAM [Concomitant]

REACTIONS (6)
  - Tremor [None]
  - Nausea [None]
  - Abdominal pain upper [None]
  - Hepatotoxicity [None]
  - Drug-induced liver injury [None]
  - Off label use [None]
